FAERS Safety Report 23020482 (Version 1)
Quarter: 2023Q4

REPORT INFORMATION
  Report Type: Other
  Country: None (occurrence: NP)
  Receive Date: 20231003
  Receipt Date: 20231003
  Transmission Date: 20240110
  Serious: Yes (Life-Threatening, Hospitalization, Other)
  Sender: FDA-Public Use
  Company Number: NP-Owlpharma Consulting, Lda.-2146623

PATIENT
  Age: 43 Year
  Sex: Female

DRUGS (5)
  1. DEXMEDETOMIDINE [Suspect]
     Active Substance: DEXMEDETOMIDINE
     Indication: Anaesthesia
  2. FENTANYL [Concomitant]
     Active Substance: FENTANYL
  3. PROPOFOL [Concomitant]
     Active Substance: PROPOFOL
  4. VECURONIUM [Concomitant]
     Active Substance: VECURONIUM BROMIDE
  5. ISOFLURANE [Concomitant]
     Active Substance: ISOFLURANE

REACTIONS (6)
  - Upper airway obstruction [Recovered/Resolved]
  - Acute postoperative sialadenitis [Recovered/Resolved]
  - Swelling [Recovered/Resolved]
  - Swelling face [Recovered/Resolved]
  - Aptyalism [Recovered/Resolved]
  - Skin erosion [Unknown]
